FAERS Safety Report 7758860-2 (Version None)
Quarter: 2011Q3

REPORT INFORMATION
  Report Type: 
  Country: None (occurrence: None)
  Receive Date: 20110916
  Receipt Date: 20110916
  Transmission Date: 20111222
  Serious: Yes (Life-Threatening, Hospitalization)
  Sender: FDA-Public Use
  Company Number: None

PATIENT
  Sex: Male
  Weight: 73 kg

DRUGS (2)
  1. CISPLATIN [Suspect]
     Dosage: 156 MG
  2. TAXOL [Suspect]
     Dosage: 374 MG

REACTIONS (3)
  - PROCTALGIA [None]
  - ANAL ABSCESS [None]
  - HAEMORRHOID INFECTION [None]
